FAERS Safety Report 13574941 (Version 6)
Quarter: 2018Q2

REPORT INFORMATION
  Report Type: Report from Study
  Country: US (occurrence: US)
  Receive Date: 20170523
  Receipt Date: 20180401
  Transmission Date: 20180711
  Serious: Yes (Hospitalization, Other)
  Sender: FDA-Public Use
  Company Number: US-BAXALTA-2017BLT004676

PATIENT
  Age: 4 Year
  Sex: Male
  Weight: 18.5 kg

DRUGS (21)
  1. VINCRISTINE [Suspect]
     Active Substance: VINCRISTINE
     Indication: ACUTE LYMPHOCYTIC LEUKAEMIA
     Dosage: 1.2 MG,(GIVEN ON DAYS 1,8,15)
     Route: 037
     Dates: start: 20170412
  2. THIOGUANINE [Suspect]
     Active Substance: THIOGUANINE
     Indication: ACUTE LYMPHOCYTIC LEUKAEMIA
     Dosage: 40 MG, WED-SUN
     Route: 048
     Dates: start: 20170520
  3. CYCLOPHOSPHAMIDE. [Suspect]
     Active Substance: CYCLOPHOSPHAMIDE
     Indication: ACUTE LYMPHOCYTIC LEUKAEMIA
     Dosage: 250 MG, ONE DOSE
     Route: 042
     Dates: start: 20170510, end: 20170510
  4. RUXOLITINIB [Suspect]
     Active Substance: RUXOLITINIB
     Dosage: 30 MG, 2X/DAY:BID (DAY 1-14)
     Route: 048
     Dates: start: 20170412
  5. THIOGUANINE [Suspect]
     Active Substance: THIOGUANINE
     Dosage: 60 MG, MON-TUES
     Route: 048
     Dates: start: 20170510
  6. THIOGUANINE [Suspect]
     Active Substance: THIOGUANINE
     Dosage: UNK
     Dates: start: 20170520
  7. DEXAMETHASONE. [Suspect]
     Active Substance: DEXAMETHASONE
     Dosage: 4 MG, 2X A DAY (DAYS 15-20)
     Route: 048
     Dates: start: 20170501
  8. CYTARABINE. [Suspect]
     Active Substance: CYTARABINE
     Dosage: 56 MG, 1X/DAY:QD
     Route: 058
     Dates: start: 20170510
  9. OXYCODONE [Concomitant]
     Active Substance: OXYCODONE
     Indication: ABDOMINAL DISCOMFORT
  10. PEGASPARGASE [Suspect]
     Active Substance: PEGASPARGASE
     Indication: ACUTE LYMPHOCYTIC LEUKAEMIA
     Dosage: 1975 IU, (DAY 4)
     Route: 042
     Dates: start: 20170415, end: 20170415
  11. METHOTREXATE. [Suspect]
     Active Substance: METHOTREXATE
     Indication: ACUTE LYMPHOCYTIC LEUKAEMIA
     Dosage: 12 MG, ONCE (DAY 1)
     Route: 037
     Dates: start: 20170412
  12. METHOTREXATE. [Suspect]
     Active Substance: METHOTREXATE
     Dosage: 12 MG, DAYS 29, 36
     Route: 048
     Dates: start: 20170510, end: 20170517
  13. VINCRISTINE [Suspect]
     Active Substance: VINCRISTINE
     Dosage: 1.1 MG, ONE DOSE
     Route: 040
     Dates: start: 20170514, end: 20170524
  14. DOXORUBICIN [Suspect]
     Active Substance: DOXORUBICIN
     Indication: ACUTE LYMPHOCYTIC LEUKAEMIA
     Dosage: 19 MG (DAYS 1, 8, 15)
     Route: 042
     Dates: start: 20170412, end: 20170420
  15. DEXAMETHASONE. [Suspect]
     Active Substance: DEXAMETHASONE
     Indication: ACUTE LYMPHOCYTIC LEUKAEMIA
     Dosage: 4 MG, 2X A DAY (DAYS 15-20)
     Route: 048
     Dates: start: 20170426
  16. DEXAMETHASONE. [Suspect]
     Active Substance: DEXAMETHASONE
     Dosage: 3.8 MG, 2X A DAY (DAYS 1-7)
     Route: 048
     Dates: start: 20170412
  17. OXYCODONE [Concomitant]
     Active Substance: OXYCODONE
     Indication: PROCTALGIA
  18. PEGASPARGASE [Suspect]
     Active Substance: PEGASPARGASE
     Dosage: 1900 IU, ONE DOSE
     Route: 042
     Dates: start: 20170524, end: 20170524
  19. RUXOLITINIB [Suspect]
     Active Substance: RUXOLITINIB
     Indication: B PRECURSOR TYPE ACUTE LEUKAEMIA
     Dosage: 30 MG, 2X/DAY:BID (DAY 1-14)
     Route: 048
     Dates: start: 20170520
  20. THIOGUANINE [Suspect]
     Active Substance: THIOGUANINE
     Dosage: 40 MG, WED-SUN
     Route: 048
     Dates: start: 20170510
  21. CYTARABINE. [Suspect]
     Active Substance: CYTARABINE
     Indication: ACUTE LYMPHOCYTIC LEUKAEMIA
     Dosage: 56 MG, 1X/DAY:QD
     Route: 058
     Dates: start: 20170520

REACTIONS (2)
  - Sepsis [Recovered/Resolved]
  - Vomiting [Recovering/Resolving]

NARRATIVE: CASE EVENT DATE: 20170520
